FAERS Safety Report 21386726 (Version 1)
Quarter: 2022Q3

REPORT INFORMATION
  Report Type: Spontaneous
  Country: US (occurrence: None)
  Receive Date: 20220926
  Receipt Date: 20220926
  Transmission Date: 20221026
  Serious: Yes (Hospitalization)
  Sender: FDA-Public Use
  Company Number: None

PATIENT
  Sex: Female

DRUGS (4)
  1. HYQVIA [Suspect]
     Active Substance: HUMAN IMMUNOGLOBULIN G\HYALURONIDASE RECOMBINANT HUMAN
     Indication: Immunodeficiency common variable
     Dosage: 30 GM/300ML ?PUSH 17.5ML HY INTO SUB-Q SET AT 1 TO 2 ML PER MINUTE. THEN INFUSE 35GM (350ML) IG SUBC
     Route: 058
     Dates: start: 20220819
  2. ACETAMINOPHEN 325 MG TAB [Concomitant]
  3. DIPHENHYDRAMINE 25 MG CAP [Concomitant]
  4. EPINEPHRINE 0.3 MG PEN (2=2) [Concomitant]

REACTIONS (9)
  - Headache [None]
  - Nausea [None]
  - Vomiting [None]
  - Weight increased [None]
  - Oesophageal ulcer [None]
  - Peripheral swelling [None]
  - Joint stiffness [None]
  - Heart rate increased [None]
  - Blood potassium decreased [None]
